FAERS Safety Report 7150067-5 (Version None)
Quarter: 2010Q4

REPORT INFORMATION
  Report Type: 
  Country: None (occurrence: None)
  Receive Date: 20101210
  Receipt Date: 20101208
  Transmission Date: 20110411
  Serious: Yes (Hospitalization, Other)
  Sender: FDA-Public Use
  Company Number: US-PFIZER INC-2010167389

PATIENT
  Sex: Female
  Weight: 82 kg

DRUGS (3)
  1. TIKOSYN [Suspect]
     Indication: ATRIAL FIBRILLATION
     Dosage: UNK
     Route: 048
     Dates: start: 20100101
  2. PREVACID [Concomitant]
     Indication: CARDIAC DISORDER
     Dosage: 30 MG, 1X/DAY
     Route: 048
  3. ACETYLSALICYLIC ACID [Concomitant]
     Indication: CARDIAC DISORDER
     Dosage: 81 MG, UNK

REACTIONS (5)
  - ARRHYTHMIA [None]
  - CHEST PAIN [None]
  - FEELING OF BODY TEMPERATURE CHANGE [None]
  - FORMICATION [None]
  - NERVOUSNESS [None]
